FAERS Safety Report 7395448-X (Version None)
Quarter: 2011Q2

REPORT INFORMATION
  Report Type: 
  Country: None (occurrence: None)
  Receive Date: 20110405
  Receipt Date: 20110314
  Transmission Date: 20111010
  Serious: No
  Sender: FDA-Public Use
  Company Number: US-B.I. PHARMACEUTICALS,INC./RIDGEFIELD-2011-BP-07857BP

PATIENT
  Sex: Female

DRUGS (1)
  1. MICARDIS HCT [Suspect]
     Indication: HYPERTENSION
     Route: 048
     Dates: start: 20110201

REACTIONS (6)
  - HEART RATE INCREASED [None]
  - DIARRHOEA [None]
  - DIZZINESS [None]
  - NYSTAGMUS [None]
  - DYSPNOEA [None]
  - DYSSTASIA [None]
